FAERS Safety Report 20741370 (Version 1)
Quarter: 2022Q2

REPORT INFORMATION
  Report Type: Spontaneous
  Country: IN (occurrence: IN)
  Receive Date: 20220422
  Receipt Date: 20220422
  Transmission Date: 20220721
  Serious: Yes (Death, Other)
  Sender: FDA-Public Use
  Company Number: IN-TAKEDA-2022TUS026221

PATIENT
  Age: 35 Year
  Sex: Male

DRUGS (8)
  1. FLEXBUMIN [Suspect]
     Active Substance: ALBUMIN HUMAN
     Indication: Hepatic cirrhosis
     Dosage: 20 GRAM, QD
     Route: 042
     Dates: start: 20211231, end: 20220118
  2. FLEXBUMIN [Suspect]
     Active Substance: ALBUMIN HUMAN
     Indication: Acute kidney injury
  3. FLEXBUMIN [Suspect]
     Active Substance: ALBUMIN HUMAN
     Indication: Cardiac failure congestive
  4. MEROPENEM [Concomitant]
     Active Substance: MEROPENEM
     Indication: Hepatic failure
     Dosage: UNK, TID
     Route: 042
     Dates: start: 20211231, end: 20220118
  5. POLYMYXIN B [Concomitant]
     Active Substance: POLYMYXIN B
     Indication: Hepatic failure
     Dosage: UNK UNK, TID
     Route: 042
     Dates: start: 20211231, end: 20220118
  6. ALBUMIN HUMAN [Concomitant]
     Active Substance: ALBUMIN HUMAN
     Route: 065
  7. FUROSEMIDE [Concomitant]
     Active Substance: FUROSEMIDE
     Route: 065
  8. KCL [Concomitant]
     Active Substance: POTASSIUM CHLORIDE
     Route: 065

REACTIONS (7)
  - Acute kidney injury [Fatal]
  - Shock [Fatal]
  - Circulatory collapse [Fatal]
  - Respiratory failure [Fatal]
  - Pyrexia [Recovered/Resolved]
  - Chills [Recovered/Resolved]
  - Hypotension [Recovered/Resolved]

NARRATIVE: CASE EVENT DATE: 20220112
